FAERS Safety Report 5010694-8 (Version None)
Quarter: 2006Q2

REPORT INFORMATION
  Report Type: 
  Country: None (occurrence: None)
  Receive Date: 20060523
  Receipt Date: 20060509
  Transmission Date: 20061013
  Serious: Yes (Hospitalization)
  Sender: FDA-Public Use
  Company Number: APP200600124

PATIENT
  Age: 75 Year
  Sex: Male
  Weight: 77.5651 kg

DRUGS (14)
  1. DEXAMETHASONE SODIUM PHOSPHATE [Suspect]
     Indication: HYPERSENSITIVITY
     Dosage: SEE IMAGE
     Dates: start: 20060406, end: 20060406
  2. DEXAMETHASONE SODIUM PHOSPHATE [Suspect]
     Indication: HYPERSENSITIVITY
     Dosage: SEE IMAGE
     Dates: start: 20060407, end: 20060407
  3. AG-013736 [Suspect]
     Indication: NEOPLASM
     Dosage: SEE IMAGE
     Dates: start: 20060403, end: 20060408
  4. AG-013736 [Suspect]
     Indication: NEOPLASM
     Dosage: SEE IMAGE
     Dates: start: 20060409
  5. PACLITAXEL [Suspect]
     Indication: NEOPLASM
     Dosage: (369 MG, 1 IN 22 D), INTRAVENOUS
     Route: 042
     Dates: start: 20060406
  6. CARBOPLATIN [Suspect]
     Indication: NEOPLASM
     Dosage: (571 MG, 1 IN 22 D), INTRAVENOUS
     Route: 042
     Dates: start: 20060407
  7. PLAVIX [Concomitant]
  8. LIPITOR [Concomitant]
  9. TOPROL-XL [Concomitant]
  10. ASPIRIN [Concomitant]
  11. CASODEX [Concomitant]
  12. ZOLADEX [Concomitant]
  13. COLACE (DOCUSATE SODIUM) [Concomitant]
  14. PROTONIX [Concomitant]

REACTIONS (14)
  - ANOREXIA [None]
  - ARTHRALGIA [None]
  - ASTHENIA [None]
  - BREATH SOUNDS ABNORMAL [None]
  - DRUG INTERACTION [None]
  - FATIGUE [None]
  - FEBRILE NEUTROPENIA [None]
  - HYPERSENSITIVITY [None]
  - HYPOTENSION [None]
  - MYALGIA [None]
  - NAUSEA [None]
  - PAIN IN EXTREMITY [None]
  - PYREXIA [None]
  - SYNCOPE [None]
